FAERS Safety Report 5669658-3 (Version None)
Quarter: 2008Q1

REPORT INFORMATION
  Report Type: 
  Country: None (occurrence: None)
  Receive Date: 20080312
  Receipt Date: 20080312
  Transmission Date: 20080703
  Serious: Yes (Life-Threatening, Hospitalization)
  Sender: FDA-Public Use
  Company Number: None

PATIENT
  Age: 57 Year
  Sex: Male
  Weight: 81 kg

DRUGS (4)
  1. CCI-779 (TEMSIROLIMUS) [Suspect]
     Indication: MULTIPLE MYELOMA
     Dosage: 25MG/M2 WEEKLY
     Dates: start: 20080306
  2. VELCADE [Suspect]
     Indication: MULTIPLE MYELOMA
     Dosage: 1-6MG/M2 WEEKLY FOR 4
     Dates: start: 20080306
  3. FENTANYL LOLLIPOPS [Concomitant]
  4. OXYCODONE HCL [Concomitant]

REACTIONS (2)
  - ANGIOEDEMA [None]
  - TUMOUR LYSIS SYNDROME [None]
